FAERS Safety Report 25728082 (Version 1)
Quarter: 2025Q3

REPORT INFORMATION
  Report Type: Spontaneous
  Country: US (occurrence: US)
  Receive Date: 20250826
  Receipt Date: 20250826
  Transmission Date: 20251021
  Serious: No
  Sender: NEUROCRINE BIOSCIENCES
  Company Number: US-NEUROCRINE BIOSCIENCES INC.-2025NBI10605

PATIENT
  Sex: Female

DRUGS (2)
  1. INGREZZA [Suspect]
     Active Substance: VALBENAZINE DITOSYLATE
     Indication: Tardive dyskinesia
     Route: 065
  2. INGREZZA [Suspect]
     Active Substance: VALBENAZINE DITOSYLATE
     Route: 065

REACTIONS (2)
  - Ill-defined disorder [Not Recovered/Not Resolved]
  - Tremor [Not Recovered/Not Resolved]
